FAERS Safety Report 18514986 (Version 1)
Quarter: 2020Q4

REPORT INFORMATION
  Report Type: Spontaneous
  Country: US (occurrence: US)
  Receive Date: 20201118
  Receipt Date: 20201118
  Transmission Date: 20210114
  Serious: No
  Sender: FDA-Public Use
  Company Number: US-UCBSA-2019054785

PATIENT

DRUGS (1)
  1. VIMPAT [Suspect]
     Active Substance: LACOSAMIDE
     Indication: PRODUCT USED FOR UNKNOWN INDICATION
     Dosage: ABOVE MAXIMUM DOSE

REACTIONS (4)
  - Partial seizures [Unknown]
  - Overdose [Unknown]
  - Toxicity to various agents [Unknown]
  - Off label use [Unknown]
